FAERS Safety Report 5099391-0 (Version None)
Quarter: 2006Q3

REPORT INFORMATION
  Report Type: 
  Country: None (occurrence: None)
  Receive Date: 20060731
  Receipt Date: 20060622
  Transmission Date: 20061208
  Serious: No
  Sender: FDA-Public Use
  Company Number: 2006PV016293

PATIENT
  Sex: Female

DRUGS (5)
  1. BYETTA [Suspect]
     Indication: DRUG USE FOR UNKNOWN INDICATION
     Dosage: 10 MCG; BID; SC, SEE IMAGE
     Route: 058
     Dates: start: 20060301
  2. BYETTA [Suspect]
     Indication: DRUG USE FOR UNKNOWN INDICATION
     Dosage: 10 MCG; BID; SC, SEE IMAGE
     Route: 058
     Dates: start: 20060401
  3. GLUCOPHAGE [Concomitant]
  4. GLYBURIDE [Concomitant]
  5. LISINOPRN [Concomitant]

REACTIONS (4)
  - FATIGUE [None]
  - MYALGIA [None]
  - URINARY TRACT INFECTION [None]
  - WEIGHT DECREASED [None]
